FAERS Safety Report 8153554-6 (Version None)
Quarter: 2012Q1

REPORT INFORMATION
  Report Type: 
  Country: None (occurrence: None)
  Receive Date: 20120103
  Receipt Date: 20110830
  Transmission Date: 20120608
  Serious: No
  Sender: FDA-Public Use
  Company Number: AE-2011-001028

PATIENT
  Age: 47 Year
  Sex: Female
  Weight: 78.9259 kg

DRUGS (11)
  1. INCIVEK [Suspect]
     Dosage: 2250 MG (750 MG,3 IN 1 D),ORAL
     Route: 048
     Dates: start: 20110627
  2. LORTAB [Concomitant]
  3. RIBAVIRIN [Concomitant]
  4. SINGULAIR [Concomitant]
  5. PEGASYS [Concomitant]
  6. CLARITIN [Concomitant]
  7. GABAPENTIN [Concomitant]
  8. CYMBALTA [Concomitant]
  9. PROZAC [Concomitant]
  10. MS CONTIN [Concomitant]
  11. ACTIVELLA (OESTRANORM) [Concomitant]

REACTIONS (1)
  - PRURITUS GENERALISED [None]
